FAERS Safety Report 25239128 (Version 1)
Quarter: 2025Q2

REPORT INFORMATION
  Report Type: Spontaneous
  Country: BR (occurrence: BR)
  Receive Date: 20250425
  Receipt Date: 20250425
  Transmission Date: 20250716
  Serious: No
  Sender: ANI
  Company Number: BR-ANIPHARMA-022431

PATIENT
  Age: 24 Year
  Sex: Female
  Weight: 69 kg

DRUGS (4)
  1. FLUVOXAMINE MALEATE [Suspect]
     Active Substance: FLUVOXAMINE MALEATE
     Indication: Panic disorder
     Route: 048
     Dates: start: 2020
  2. RIVOTRIL [Concomitant]
     Active Substance: CLONAZEPAM
     Indication: Panic disorder
  3. FLUVOXAMINE MALEATE [Suspect]
     Active Substance: FLUVOXAMINE MALEATE
     Indication: Generalised anxiety disorder
     Route: 048
     Dates: start: 2020
  4. RIVOTRIL [Concomitant]
     Active Substance: CLONAZEPAM
     Indication: Generalised anxiety disorder

REACTIONS (13)
  - Binge eating [Recovering/Resolving]
  - Intentional product misuse [Unknown]
  - Emotional distress [Unknown]
  - Hypersomnia [Unknown]
  - Incorrect dose administered [Unknown]
  - Decreased appetite [Recovered/Resolved]
  - Bulimia nervosa [Recovered/Resolved]
  - Weight abnormal [Unknown]
  - Performance fear [Unknown]
  - Emotional disorder [Unknown]
  - Treatment noncompliance [Unknown]
  - Abnormal behaviour [Unknown]
  - Vomiting [Unknown]

NARRATIVE: CASE EVENT DATE: 20201101
